FAERS Safety Report 13892763 (Version 2)
Quarter: 2022Q4

REPORT INFORMATION
  Report Type: Spontaneous
  Country: US (occurrence: None)
  Receive Date: 20170822
  Receipt Date: 20221215
  Transmission Date: 20230113
  Serious: Yes (Other)
  Sender: FDA-Public Use
  Company Number: US-ROCHE-1348333

PATIENT
  Age: 72 Year
  Sex: Male
  Weight: 59.020 kg

DRUGS (4)
  1. HERCEPTIN [Suspect]
     Active Substance: TRASTUZUMAB
     Indication: HER2 positive salivary gland cancer
     Dosage: FORM OF ADMIN :6MG/KG, IV
     Route: 042
     Dates: start: 2008
  2. XELODA [Suspect]
     Active Substance: CAPECITABINE
     Indication: Salivary gland cancer
     Dosage: WEEK ON, WEEK OFF
     Route: 048
     Dates: start: 2008
  3. PERJETA [Suspect]
     Active Substance: PERTUZUMAB
     Indication: HER2 positive salivary gland cancer
     Route: 042
  4. XGEVA [Concomitant]
     Active Substance: DENOSUMAB
     Indication: Metastases to bone
     Route: 058

REACTIONS (6)
  - Disease progression [Unknown]
  - Anaemia [Not Recovered/Not Resolved]
  - Fatigue [Not Recovered/Not Resolved]
  - Metastases to bone [Not Recovered/Not Resolved]
  - Off label use [Unknown]
  - Off label use [Unknown]
